FAERS Safety Report 7315376-5 (Version None)
Quarter: 2011Q1

REPORT INFORMATION
  Report Type: 
  Country: None (occurrence: None)
  Receive Date: 20110215
  Receipt Date: 20110204
  Transmission Date: 20110831
  Serious: Yes (Other)
  Sender: FDA-Public Use
  Company Number: WAES 1102BEL00013

PATIENT
  Age: 46 Year
  Sex: Female

DRUGS (2)
  1. METFORMIN [Concomitant]
  2. JANUVIA [Suspect]
     Indication: TYPE 2 DIABETES MELLITUS
     Dosage: 100 MG/DAILY, PO
     Route: 048

REACTIONS (1)
  - HYPOGLYCAEMIA [None]
